FAERS Safety Report 7385565-2 (Version None)
Quarter: 2011Q1

REPORT INFORMATION
  Report Type: 
  Country: None (occurrence: None)
  Receive Date: 20110331
  Receipt Date: 20110323
  Transmission Date: 20110831
  Serious: No
  Sender: FDA-Public Use
  Company Number: US-BIOGENIDEC-2010BI042501

PATIENT
  Sex: Female

DRUGS (10)
  1. LYRICA [Concomitant]
     Indication: PAIN IN EXTREMITY
  2. GABAPENTIN [Concomitant]
     Indication: ARTHRALGIA
  3. GABAPENTIN [Concomitant]
     Indication: BACK PAIN
  4. LYRICA [Concomitant]
     Indication: ARTHRALGIA
  5. GABAPENTIN [Concomitant]
     Indication: PAIN IN EXTREMITY
  6. TYSABRI [Suspect]
     Indication: MULTIPLE SCLEROSIS
     Route: 042
     Dates: start: 20101115
  7. AVONEX [Concomitant]
     Indication: MULTIPLE SCLEROSIS
     Route: 030
     Dates: start: 20060424
  8. LYRICA [Concomitant]
     Indication: BACK PAIN
  9. LYRICA [Concomitant]
     Indication: MUSCULOSKELETAL PAIN
  10. GABAPENTIN [Concomitant]
     Indication: MUSCULOSKELETAL PAIN

REACTIONS (8)
  - PARAESTHESIA [None]
  - ARTHRALGIA [None]
  - DRUG EFFECT DECREASED [None]
  - PAIN IN EXTREMITY [None]
  - MUSCLE TIGHTNESS [None]
  - BACK PAIN [None]
  - MUSCULOSKELETAL PAIN [None]
  - MUSCULAR WEAKNESS [None]
